FAERS Safety Report 14186641 (Version 2)
Quarter: 2018Q1

REPORT INFORMATION
  Report Type: Spontaneous
  Country: US (occurrence: US)
  Receive Date: 20171114
  Receipt Date: 20180313
  Transmission Date: 20180508
  Serious: Yes (Other)
  Sender: FDA-Public Use
  Company Number: US-GLAXOSMITHKLINE-US2017GSK173060

PATIENT
  Age: 32 Year
  Sex: Male

DRUGS (8)
  1. DOXYCYCLINE. [Suspect]
     Active Substance: DOXYCYCLINE
     Indication: DERMATITIS ACNEIFORM
     Route: 048
  2. CLARITHROMYCIN. [Concomitant]
     Active Substance: CLARITHROMYCIN
     Indication: PRODUCT USED FOR UNKNOWN INDICATION
     Dosage: UNK
     Route: 065
  3. PREDNISONE. [Suspect]
     Active Substance: PREDNISONE
     Indication: DERMATITIS ACNEIFORM
  4. PANTOPRAZOLE [Suspect]
     Active Substance: PANTOPRAZOLE
     Indication: DYSPEPSIA
     Dosage: UNK
     Route: 065
  5. LANSOPRAZOLE. [Suspect]
     Active Substance: LANSOPRAZOLE
     Indication: GRANULOMATOUS DERMATITIS
     Dosage: UNK
     Route: 065
  6. AMOXICILLIN. [Concomitant]
     Active Substance: AMOXICILLIN
     Indication: GRANULOMATOUS DERMATITIS
     Dosage: UNK
     Route: 065
  7. ISOTRETINOIN. [Suspect]
     Active Substance: ISOTRETINOIN
     Indication: DERMATITIS ACNEIFORM
  8. METRONIDAZOLE. [Concomitant]
     Active Substance: METRONIDAZOLE
     Indication: PRODUCT USED FOR UNKNOWN INDICATION

REACTIONS (15)
  - Granulomatous dermatitis [Not Recovered/Not Resolved]
  - Papule [Recovered/Resolved]
  - Skin mass [Unknown]
  - Skin exfoliation [Recovered/Resolved]
  - Skin lesion [Unknown]
  - Dermatitis acneiform [Not Recovered/Not Resolved]
  - Rash [Recovered/Resolved]
  - Helicobacter infection [Recovered/Resolved]
  - Therapy non-responder [Unknown]
  - Gastric mucosa erythema [Recovered/Resolved]
  - Condition aggravated [Unknown]
  - Lichenoid keratosis [Recovered/Resolved]
  - Abdominal pain [Recovered/Resolved]
  - Dermatosis [Recovered/Resolved]
  - Rash pustular [Unknown]
